FAERS Safety Report 9493879 (Version 1)
Quarter: 2013Q3

REPORT INFORMATION
  Report Type: Report from Study
  Country: CL (occurrence: CL)
  Receive Date: 20130903
  Receipt Date: 20130903
  Transmission Date: 20140515
  Serious: Yes (Other)
  Sender: FDA-Public Use
  Company Number: CL-ROCHE-1269595

PATIENT
  Age: 56 Year
  Sex: Male
  Weight: 53 kg

DRUGS (1)
  1. XELODA [Suspect]
     Indication: GASTRIC CANCER
     Route: 048
     Dates: start: 20130202, end: 20130826

REACTIONS (1)
  - Metastases to liver [Unknown]
